FAERS Safety Report 9522538 (Version 1)
Quarter: 2013Q1

REPORT INFORMATION
  Report Type: Spontaneous
  Country: US (occurrence: None)
  Receive Date: 20130305
  Receipt Date: 20130305
  Transmission Date: 20140127
  Serious: Yes (Other)
  Sender: FDA-Public Use
  Company Number: 163-21880-12063621

PATIENT
  Age: 76 Year
  Sex: Male

DRUGS (6)
  1. REVLIMID [Suspect]
     Indication: PLASMA CELL MYELOMA
     Dosage: 15 MG, X 14 DAYS OF 21 DAYS, PO
     Route: 048
     Dates: start: 20120315
  2. MEGACE (MEGESTROL ACETATE) [Concomitant]
  3. VELCADE [Concomitant]
  4. DEXAMETHASONE (DEXAMETHASONE) [Concomitant]
  5. MAGNESIUM OXIDE (MAGNESIUM OXIDE) [Concomitant]
  6. PROTONIX [Concomitant]

REACTIONS (1)
  - Pancytopenia [None]
